FAERS Safety Report 17484172 (Version 1)
Quarter: 2020Q1

REPORT INFORMATION
  Report Type: Spontaneous
  Country: US (occurrence: US)
  Receive Date: 20200302
  Receipt Date: 20200302
  Transmission Date: 20200409
  Serious: No
  Sender: FDA-Public Use
  Company Number: US-EPIC PHARMA LLC-2020EPC00070

PATIENT
  Sex: Female

DRUGS (1)
  1. GUANFACINE. [Suspect]
     Active Substance: GUANFACINE

REACTIONS (1)
  - Blood pressure increased [Not Recovered/Not Resolved]
